FAERS Safety Report 18513988 (Version 1)
Quarter: 2020Q4

REPORT INFORMATION
  Report Type: Spontaneous
  Country: US (occurrence: US)
  Receive Date: 20201117
  Receipt Date: 20201117
  Transmission Date: 20210114
  Serious: Yes (Hospitalization)
  Sender: FDA-Public Use
  Company Number: US-009507513-2011USA006824

PATIENT
  Age: 70 Year
  Sex: Male
  Weight: 72.6 kg

DRUGS (9)
  1. RANITIDINE. [Concomitant]
     Active Substance: RANITIDINE
     Indication: GASTROOESOPHAGEAL REFLUX DISEASE
     Route: 048
  2. LORATADINE. [Concomitant]
     Active Substance: LORATADINE
     Indication: HYPERSENSITIVITY
     Route: 048
  3. COUMADIN [Concomitant]
     Active Substance: WARFARIN SODIUM
     Indication: CORONARY ARTERY BYPASS
     Dosage: DAILY
     Route: 048
     Dates: start: 2005
  4. MOVANTIK [Suspect]
     Active Substance: NALOXEGOL OXALATE
     Indication: CONSTIPATION
     Dosage: 25 MILLIGRAM, QD
     Route: 048
     Dates: start: 201702
  5. METOPROLOL TARTRATE. [Suspect]
     Active Substance: METOPROLOL TARTRATE
     Indication: CARDIAC DISORDER
     Dosage: 12.5 MILLIGRAM, QD
     Route: 048
  6. LIPOFLAVONOID [Concomitant]
     Active Substance: UNSPECIFIED INGREDIENT
     Indication: TINNITUS
     Dosage: 6 DOSAGE FORM, QD
     Route: 048
     Dates: start: 201701
  7. PRINIVIL [Suspect]
     Active Substance: LISINOPRIL
     Indication: CARDIAC DISORDER
     Dosage: 35 MILLIGRAM, QD
     Route: 048
     Dates: start: 2005
  8. LEVOTHYROXINE SODIUM. [Concomitant]
     Active Substance: LEVOTHYROXINE SODIUM
     Indication: THYROID DISORDER
     Dosage: 0.25 MILLIGRAM, QD
     Route: 048
     Dates: start: 2016
  9. HYDROCODONE [Concomitant]
     Active Substance: HYDROCODONE
     Indication: PAIN
     Route: 048

REACTIONS (6)
  - Gastrointestinal haemorrhage [Unknown]
  - Abdominal pain [Not Recovered/Not Resolved]
  - Rectal haemorrhage [Recovered/Resolved]
  - Rectal fissure [Recovered/Resolved]
  - Constipation [Unknown]
  - Faeces hard [Not Recovered/Not Resolved]

NARRATIVE: CASE EVENT DATE: 2013
